FAERS Safety Report 4817595-6 (Version None)
Quarter: 2005Q4

REPORT INFORMATION
  Report Type: 
  Country: None (occurrence: None)
  Receive Date: 20051031
  Receipt Date: 20051020
  Transmission Date: 20060501
  Serious: Yes (Life-Threatening, Hospitalization, Other)
  Sender: FDA-Public Use
  Company Number: 2005-05-0742

PATIENT
  Age: 55 Year
  Sex: Male
  Weight: 47 kg

DRUGS (2)
  1. PEG-INTRON [Suspect]
     Indication: HEPATITIS C
     Dosage: 80 MCG QW SUBCUTANEOUS
     Route: 058
     Dates: start: 20050125, end: 20050427
  2. REBETOL [Suspect]
     Indication: HEPATITIS C
     Dosage: 600 MG ORAL
     Route: 048
     Dates: start: 20050126, end: 20050430

REACTIONS (13)
  - DISSEMINATED INTRAVASCULAR COAGULATION [None]
  - FUSOBACTERIUM INFECTION [None]
  - MALAISE [None]
  - ODYNOPHAGIA [None]
  - ORAL INTAKE REDUCED [None]
  - PAIN [None]
  - PARAPHARYNGEAL ABSCESS [None]
  - PHARYNGITIS [None]
  - PLATELET COUNT DECREASED [None]
  - PULMONARY OEDEMA [None]
  - PYREXIA [None]
  - SEPTIC EMBOLUS [None]
  - THROMBOPHLEBITIS [None]
